FAERS Safety Report 23732168 (Version 1)
Quarter: 2024Q2

REPORT INFORMATION
  Report Type: Spontaneous
  Country: US (occurrence: None)
  Receive Date: 20240410
  Receipt Date: 20240410
  Transmission Date: 20240716
  Serious: No
  Sender: FDA-Public Use
  Company Number: None

PATIENT
  Age: 25 Year
  Sex: Female
  Weight: 132.75 kg

DRUGS (4)
  1. ORILISSA [Suspect]
     Active Substance: ELAGOLIX SODIUM
     Indication: Endometriosis
     Dates: end: 20240312
  2. AZITHROMYCIN [Concomitant]
     Active Substance: AZITHROMYCIN
  3. NAPROXEN [Concomitant]
     Active Substance: NAPROXEN
  4. Acetaminophen 8 Hours Extended Release [Concomitant]

REACTIONS (1)
  - Drug hypersensitivity [None]

NARRATIVE: CASE EVENT DATE: 20240312
